FAERS Safety Report 12278792 (Version 2)
Quarter: 2016Q2

REPORT INFORMATION
  Report Type: Spontaneous
  Country: US (occurrence: US)
  Receive Date: 20160418
  Receipt Date: 20160506
  Transmission Date: 20160815
  Serious: Yes (Other)
  Sender: FDA-Public Use
  Company Number: US-MDT-ADR-2015-02441

PATIENT
  Sex: Female

DRUGS (1)
  1. COMPOUNDED BACLOFEN [Suspect]
     Active Substance: BACLOFEN
     Dosage: 114MCG/DAY
     Route: 037

REACTIONS (1)
  - Impaired healing [Recovered/Resolved]
